FAERS Safety Report 17238870 (Version 5)
Quarter: 2020Q1

REPORT INFORMATION
  Report Type: Spontaneous
  Country: US (occurrence: US)
  Receive Date: 20200106
  Receipt Date: 20200130
  Transmission Date: 20200409
  Serious: No
  Sender: FDA-Public Use
  Company Number: US-SA-2020SA001996

PATIENT
  Age: 32 Year
  Sex: Male
  Weight: 91.2 kg

DRUGS (4)
  1. CABLIVI [Suspect]
     Active Substance: CAPLACIZUMAB-YHDP
     Indication: THROMBOTIC MICROANGIOPATHY
     Dosage: 11 MG, QD
     Route: 058
     Dates: start: 20191224
  2. LIPITOR [Concomitant]
     Active Substance: ATORVASTATIN CALCIUM
     Indication: BLOOD CHOLESTEROL ABNORMAL
     Dosage: UNK UNK, UNK
     Route: 065
  3. ZOFRAN [Suspect]
     Active Substance: ONDANSETRON HYDROCHLORIDE
  4. CELLCEPT [Suspect]
     Active Substance: MYCOPHENOLATE MOFETIL\MYCOPHENOLATE MOFETIL HYDROCHLORIDE
     Dosage: UNK UNK, UNK
     Route: 065

REACTIONS (8)
  - Diarrhoea [Unknown]
  - Blood lactate dehydrogenase increased [Unknown]
  - Gingival bleeding [Unknown]
  - Vomiting [Unknown]
  - Haematidrosis [Unknown]
  - Incorrect dose administered [Unknown]
  - Contusion [Unknown]
  - Epistaxis [Unknown]

NARRATIVE: CASE EVENT DATE: 20191229
